FAERS Safety Report 14923545 (Version 3)
Quarter: 2018Q3

REPORT INFORMATION
  Report Type: Spontaneous
  Country: HU (occurrence: HU)
  Receive Date: 20180522
  Receipt Date: 20180820
  Transmission Date: 20181010
  Serious: Yes (Other)
  Sender: FDA-Public Use
  Company Number: HU-PFIZER INC-2018201694

PATIENT
  Age: 49 Year
  Sex: Female

DRUGS (11)
  1. EPIRUBICIN [Suspect]
     Active Substance: EPIRUBICIN
     Indication: BREAST CANCER
     Dosage: UNK
     Route: 065
     Dates: start: 20111128, end: 20120220
  2. XELODA [Suspect]
     Active Substance: CAPECITABINE
     Indication: BREAST CANCER
     Dosage: UNK
     Route: 065
     Dates: start: 20160627, end: 20170101
  3. LETROZOLE. [Suspect]
     Active Substance: LETROZOLE
     Indication: BREAST CANCER
     Dosage: UNK
     Route: 065
     Dates: start: 20120326
  4. FASLODEX [Suspect]
     Active Substance: FULVESTRANT
     Indication: BREAST CANCER
     Route: 065
  5. TAXOL [Suspect]
     Active Substance: PACLITAXEL
     Indication: BREAST CANCER
     Dosage: UNK
     Route: 065
     Dates: start: 20111128, end: 20120220
  6. TAXOTERE [Suspect]
     Active Substance: DOCETAXEL
     Indication: BREAST CANCER
     Dosage: UNK
     Route: 065
     Dates: start: 20141216, end: 20150416
  7. CYCLOPHOSPHAMIDE. [Suspect]
     Active Substance: CYCLOPHOSPHAMIDE
     Indication: BREAST CANCER
     Dosage: 3?3 COURSES
     Route: 065
  8. METHOTREXATE. [Suspect]
     Active Substance: METHOTREXATE
     Indication: BREAST CANCER
     Dosage: 3?3 COURSES
     Route: 065
  9. AFINITOR [Suspect]
     Active Substance: EVEROLIMUS
     Indication: BREAST CANCER
     Dosage: UNK
     Route: 065
     Dates: start: 201706
  10. FLUOROURACIL. [Suspect]
     Active Substance: FLUOROURACIL
     Indication: BREAST CANCER
     Dosage: 3?3 COURSES
     Route: 065
  11. TAMOXIFEN [Suspect]
     Active Substance: TAMOXIFEN
     Indication: BREAST CANCER
     Dosage: UNK
     Route: 065

REACTIONS (14)
  - Weight increased [Unknown]
  - Cough [Unknown]
  - Febrile neutropenia [Unknown]
  - Neoplasm progression [Unknown]
  - Drug resistance [Unknown]
  - Renal impairment [Unknown]
  - Pleural effusion [Unknown]
  - Pulmonary mass [Unknown]
  - Anaemia [Unknown]
  - Cachexia [Unknown]
  - Tumour marker increased [Unknown]
  - Inflammation [Unknown]
  - Dyspnoea [Unknown]
  - Metabolic disorder [Unknown]

NARRATIVE: CASE EVENT DATE: 20110919
